FAERS Safety Report 8563812 (Version 3)
Quarter: 2012Q4

REPORT INFORMATION
  Report Type: 
  Country: DE (occurrence: DE)
  Receive Date: 20120515
  Receipt Date: 20121231
  Transmission Date: 20130627
  Serious: Yes (Death, Life-Threatening, Hospitalization)
  Sender: FDA-Public Use
  Company Number: DE-B.I. PHARMACEUTICALS,INC./RIDGEFIELD-2012-DE-01240DE

PATIENT
  Age: 83 Year
  Sex: Female
  Weight: 60 kg

DRUGS (8)
  1. PRADAXA [Suspect]
     Indication: ANTICOAGULANT THERAPY
     Dosage: 220 mg
     Route: 048
  2. METOPROLOL [Concomitant]
     Dates: start: 20120103
  3. ALLOPURINOL [Concomitant]
     Dates: start: 20120227
  4. HYDROCUTAN [Concomitant]
     Dosage: 20 g
     Dates: start: 20120228
  5. THORASEMID [Concomitant]
     Dates: start: 20120326
  6. LOSARTAN [Concomitant]
     Dates: start: 20120402
  7. FERRO SANOL DUODENAL [Concomitant]
     Dates: start: 20120402
  8. PANTOPRAZOL [Concomitant]
     Dates: start: 20120402

REACTIONS (5)
  - Renal failure [Fatal]
  - Gastroenteritis [Fatal]
  - Renal impairment [Unknown]
  - Cardiac failure [Unknown]
  - Dehydration [Unknown]
